FAERS Safety Report 7126292-6 (Version None)
Quarter: 2010Q4

REPORT INFORMATION
  Report Type: 
  Country: None (occurrence: None)
  Receive Date: 20101129
  Receipt Date: 20101116
  Transmission Date: 20110411
  Serious: Yes (Hospitalization)
  Sender: FDA-Public Use
  Company Number: US-ELI_LILLY_AND_COMPANY-US201004003313

PATIENT
  Sex: Female

DRUGS (28)
  1. FORTEO [Suspect]
     Indication: OSTEOPOROSIS
     Dosage: 20 UG, DAILY (1/D)
     Route: 065
     Dates: start: 20100101
  2. FORTEO [Suspect]
     Dosage: 20 UG, DAILY (1/D)
     Route: 065
  3. NYSTATIN [Concomitant]
     Dosage: UNK, UNKNOWN
     Route: 065
  4. FLUCONAZOLE [Concomitant]
     Dosage: UNK, UNKNOWN
     Route: 065
  5. LEXAPRO [Concomitant]
     Dosage: UNK, UNKNOWN
     Route: 065
  6. CETIRIZINE HCL [Concomitant]
     Dosage: UNK, UNKNOWN
     Route: 065
  7. SINGULAIR [Concomitant]
     Dosage: UNK, UNKNOWN
     Route: 065
  8. CELEBREX [Concomitant]
     Dosage: UNK, UNKNOWN
     Route: 065
  9. ADVAIR DISKUS 100/50 [Concomitant]
     Dosage: UNK, UNKNOWN
     Route: 065
  10. CYMBALTA [Concomitant]
     Dosage: UNK, UNKNOWN
     Route: 065
  11. ASPIRIN [Concomitant]
     Dosage: UNK, UNKNOWN
     Route: 065
  12. FOLIC ACID [Concomitant]
     Dosage: UNK, UNKNOWN
     Route: 065
  13. LEFLUNOMIDE [Concomitant]
     Dosage: UNK, UNKNOWN
     Route: 065
  14. HYDROCODONE BITARTRATE AND ACETAMINOPHEN [Concomitant]
     Dosage: UNK, UNKNOWN
     Route: 065
  15. LYRICA [Concomitant]
     Dosage: UNK, UNKNOWN
     Route: 065
  16. PLAVIX [Concomitant]
     Dosage: UNK, UNKNOWN
     Route: 065
  17. COZAAR [Concomitant]
     Dosage: UNK, UNKNOWN
     Route: 065
  18. TREMADOL [Concomitant]
     Dosage: UNK, UNKNOWN
     Route: 065
  19. VITAMIN D [Concomitant]
     Dosage: UNK, UNKNOWN
     Route: 065
  20. ONDANSETRON [Concomitant]
     Dosage: UNK, UNKNOWN
     Route: 065
  21. CARBIDOPA AND LEVODOPA [Concomitant]
     Dosage: UNK, UNKNOWN
     Route: 065
  22. FUROSEMIDE [Concomitant]
     Dosage: UNK, UNKNOWN
     Route: 065
  23. POTASSIUM CHLORIDE [Concomitant]
     Dosage: UNK, UNKNOWN
     Route: 065
  24. EYE DROPS [Concomitant]
     Dosage: UNK, UNKNOWN
     Route: 065
  25. ZINC [Concomitant]
     Dosage: UNK, UNKNOWN
     Route: 065
  26. MAGNESIUM [Concomitant]
     Dosage: UNK, UNKNOWN
     Route: 065
  27. ASCORBIC ACID [Concomitant]
     Dosage: UNK, UNKNOWN
     Route: 065
  28. REMICADE [Concomitant]
     Dosage: UNK, UNKNOWN
     Route: 065

REACTIONS (4)
  - INJECTION SITE HAEMATOMA [None]
  - PAIN [None]
  - PRURITUS GENERALISED [None]
  - ROTATOR CUFF SYNDROME [None]
